FAERS Safety Report 19378013 (Version 1)
Quarter: 2021Q2

REPORT INFORMATION
  Report Type: Other
  Country: AT (occurrence: AT)
  Receive Date: 20210604
  Receipt Date: 20210604
  Transmission Date: 20210717
  Serious: Yes (Other)
  Sender: FDA-Public Use
  Company Number: AT-CELLTRION INC.-2021AT007385

PATIENT

DRUGS (24)
  1. GEMCITABINE. [Suspect]
     Active Substance: GEMCITABINE
     Indication: DIFFUSE LARGE B-CELL LYMPHOMA
     Dosage: 4 CYCLES R?GDP
     Route: 065
     Dates: start: 201812
  2. DOXORUBICIN [Suspect]
     Active Substance: DOXORUBICIN
     Indication: DIFFUSE LARGE B-CELL LYMPHOMA
     Dosage: 6 CYCLES R?CHOP
     Route: 065
     Dates: start: 201611, end: 201704
  3. POLATUZUMAB VEDOTIN. [Suspect]
     Active Substance: POLATUZUMAB VEDOTIN
     Dosage: 4 CYCLES RITUXIMAB/POLATUZUMAB
     Route: 065
     Dates: start: 202005, end: 202007
  4. PREDNISONE. [Suspect]
     Active Substance: PREDNISONE
     Indication: DIFFUSE LARGE B-CELL LYMPHOMA
     Dosage: 6 CYCLES R?CHOP
     Route: 065
     Dates: start: 201611, end: 201704
  5. CYCLOPHOSPHAMIDE. [Suspect]
     Active Substance: CYCLOPHOSPHAMIDE
     Indication: DIFFUSE LARGE B-CELL LYMPHOMA
     Dosage: LYMPHODEPLETING CHEMOTHERAPY
     Route: 065
     Dates: start: 20191223, end: 20191224
  6. RITUXIMAB (UNKNOWN) [Suspect]
     Active Substance: RITUXIMAB
     Indication: DIFFUSE LARGE B-CELL LYMPHOMA
     Dosage: 6 CYCLES R?CHOP
     Route: 065
     Dates: start: 201611, end: 201704
  7. RITUXIMAB (UNKNOWN) [Suspect]
     Active Substance: RITUXIMAB
     Dosage: 2 ADDITIONAL CYCLES R?POLA
     Route: 065
     Dates: start: 202009, end: 202010
  8. VINCRISTINE [Suspect]
     Active Substance: VINCRISTINE
     Indication: DIFFUSE LARGE B-CELL LYMPHOMA
     Dosage: 6 CYCLES R?CHOP
     Route: 065
     Dates: start: 201611, end: 201704
  9. MELPHALAN. [Suspect]
     Active Substance: MELPHALAN
     Indication: DIFFUSE LARGE B-CELL LYMPHOMA
     Dosage: HIGH DOSE BEAM
     Route: 065
     Dates: start: 201903
  10. CISPLATIN. [Suspect]
     Active Substance: CISPLATIN
     Indication: DIFFUSE LARGE B-CELL LYMPHOMA
     Dosage: 4 CYCLES R?GDP
     Route: 065
     Dates: start: 201812
  11. BENDAMUSTINE [Suspect]
     Active Substance: BENDAMUSTINE
     Indication: DIFFUSE LARGE B-CELL LYMPHOMA
     Dosage: 3 CYCLES
     Route: 065
     Dates: start: 201809
  12. CYTARABINE. [Suspect]
     Active Substance: CYTARABINE
     Indication: DIFFUSE LARGE B-CELL LYMPHOMA
     Dosage: HIGH DOSE BEAM
     Route: 065
     Dates: start: 201903
  13. RITUXIMAB (UNKNOWN) [Suspect]
     Active Substance: RITUXIMAB
     Dosage: 4 CYCLES RITUXIMAB/POLATUZUMAB
     Route: 065
     Dates: start: 202005, end: 202007
  14. ETOPOSIDE. [Suspect]
     Active Substance: ETOPOSIDE
     Indication: DIFFUSE LARGE B-CELL LYMPHOMA
     Dosage: HIGH DOSE BEAM
     Route: 065
     Dates: start: 201903
  15. CYCLOPHOSPHAMIDE. [Suspect]
     Active Substance: CYCLOPHOSPHAMIDE
     Indication: LYMPHOCYTE ADOPTIVE THERAPY
     Dosage: 6 CYCLES R?CHOP
     Route: 065
     Dates: start: 201611, end: 201704
  16. CARMUSTINE. [Suspect]
     Active Substance: CARMUSTINE
     Indication: DIFFUSE LARGE B-CELL LYMPHOMA
     Dosage: HIGH DOSE BEAM
     Route: 065
     Dates: start: 201903
  17. POLATUZUMAB VEDOTIN. [Suspect]
     Active Substance: POLATUZUMAB VEDOTIN
     Indication: DIFFUSE LARGE B-CELL LYMPHOMA
     Dosage: BRIDGING THERAPY
     Route: 065
     Dates: start: 20191205
  18. BENDAMUSTINE [Suspect]
     Active Substance: BENDAMUSTINE
     Dosage: BRIDGING THERAPY
     Route: 065
     Dates: start: 20191205
  19. POLATUZUMAB VEDOTIN. [Suspect]
     Active Substance: POLATUZUMAB VEDOTIN
     Dosage: 2 ADDITIONAL CYCLES R?POLA
     Route: 065
     Dates: start: 202009, end: 202010
  20. DEXAMETHASONE. [Suspect]
     Active Substance: DEXAMETHASONE
     Indication: DIFFUSE LARGE B-CELL LYMPHOMA
     Dosage: 4 CYCLES R?GDP
     Route: 065
     Dates: start: 201812
  21. RITUXIMAB (UNKNOWN) [Suspect]
     Active Substance: RITUXIMAB
     Dosage: BRIDGING THERAPY
     Route: 065
     Dates: start: 20191205
  22. OBINUTUZUMAB. [Suspect]
     Active Substance: OBINUTUZUMAB
     Indication: DIFFUSE LARGE B-CELL LYMPHOMA
     Dosage: 3 CYCLES
     Route: 065
     Dates: start: 201809
  23. RITUXIMAB (UNKNOWN) [Suspect]
     Active Substance: RITUXIMAB
     Dosage: 4 CYCLES WITH R?GDP
     Route: 065
     Dates: start: 201812
  24. FLUDARABINE [Suspect]
     Active Substance: FLUDARABINE PHOSPHATE
     Indication: LYMPHOCYTE ADOPTIVE THERAPY
     Dosage: LYMPHODEPLETING CHEMOTHERAPY
     Route: 065
     Dates: start: 20191223, end: 20191224

REACTIONS (9)
  - Disease progression [Unknown]
  - Intentional product use issue [Unknown]
  - Disease recurrence [Unknown]
  - Ill-defined disorder [Unknown]
  - Diffuse large B-cell lymphoma [Unknown]
  - Disease progression [Unknown]
  - Off label use [Unknown]
  - Myelosuppression [Unknown]
  - Lymphadenopathy [Unknown]

NARRATIVE: CASE EVENT DATE: 201807
